FAERS Safety Report 6922708-6 (Version None)
Quarter: 2010Q3

REPORT INFORMATION
  Report Type: 
  Country: None (occurrence: None)
  Receive Date: 20100811
  Receipt Date: 20100623
  Transmission Date: 20110219
  Serious: Yes (Other)
  Sender: FDA-Public Use
  Company Number: DSA_65287_2010

PATIENT
  Sex: Male
  Weight: 79.3795 kg

DRUGS (9)
  1. RYBIX ODT-TRAMADOL [Suspect]
     Indication: ARTHRALGIA
     Dosage: (DF), (50 MG QD ORAL)
     Route: 048
     Dates: start: 20090101, end: 20090101
  2. RYBIX ODT-TRAMADOL [Suspect]
     Indication: ARTHRALGIA
     Dosage: (DF), (50 MG QD ORAL)
     Route: 048
     Dates: start: 20100621, end: 20100622
  3. MS CONTIN [Suspect]
     Indication: ARTHRALGIA
     Dosage: (30 MG TID ORAL)
     Route: 048
     Dates: start: 20090101, end: 20100621
  4. CELEXA [Concomitant]
  5. ROXICODONE [Concomitant]
  6. NORVASC [Concomitant]
  7. LISINOPRIL [Concomitant]
  8. NUVIGIL [Concomitant]
  9. LORATADINE [Concomitant]

REACTIONS (6)
  - ASTHENIA [None]
  - DRUG WITHDRAWAL SYNDROME [None]
  - HALLUCINATION [None]
  - HEADACHE [None]
  - MUSCLE SPASMS [None]
  - SOMNOLENCE [None]
